FAERS Safety Report 9881751 (Version 1)
Quarter: 2014Q1

REPORT INFORMATION
  Report Type: Report from Study
  Country: US (occurrence: US)
  Receive Date: 20140207
  Receipt Date: 20140207
  Transmission Date: 20141002
  Serious: Yes (Hospitalization)
  Sender: FDA-Public Use
  Company Number: US-TEVA-461255USA

PATIENT
  Sex: Female

DRUGS (2)
  1. CLARAVIS [Suspect]
     Route: 048
  2. AMNESTEEM [Suspect]
     Route: 048

REACTIONS (3)
  - Hypersensitivity [Unknown]
  - Rash [Unknown]
  - Pyrexia [Unknown]
